FAERS Safety Report 7331358-1 (Version None)
Quarter: 2011Q1

REPORT INFORMATION
  Report Type: 
  Country: None (occurrence: None)
  Receive Date: 20110304
  Receipt Date: 20110223
  Transmission Date: 20110831
  Serious: No
  Sender: FDA-Public Use
  Company Number: US-BAYER-2011-017704

PATIENT
  Sex: Female

DRUGS (1)
  1. MIRENA [Suspect]
     Indication: CONTRACEPTION
     Dosage: UNK
     Route: 015
     Dates: start: 20100801, end: 20110217

REACTIONS (6)
  - BREAST TENDERNESS [None]
  - HEADACHE [None]
  - DIZZINESS [None]
  - ANTEPARTUM HAEMORRHAGE [None]
  - ABDOMINAL PAIN [None]
  - PREGNANCY WITH CONTRACEPTIVE DEVICE [None]
